FAERS Safety Report 17451830 (Version 1)
Quarter: 2020Q1

REPORT INFORMATION
  Report Type: Spontaneous
  Country: US (occurrence: US)
  Receive Date: 20200224
  Receipt Date: 20200224
  Transmission Date: 20200409
  Serious: No
  Sender: FDA-Public Use
  Company Number: US-TOLMAR, INC.-19US019708

PATIENT
  Age: 71 Year
  Sex: Male

DRUGS (1)
  1. ELIGARD [Suspect]
     Active Substance: LEUPROLIDE ACETATE
     Indication: PROSTATE CANCER
     Dosage: 45 MG; EVERY 6 MONTHS
     Route: 058
     Dates: start: 20190118

REACTIONS (3)
  - Product colour issue [None]
  - Intercepted product preparation error [None]
  - Product physical consistency issue [None]

NARRATIVE: CASE EVENT DATE: 20191217
